FAERS Safety Report 7263327-4 (Version None)
Quarter: 2011Q1

REPORT INFORMATION
  Report Type: 
  Country: None (occurrence: None)
  Receive Date: 20110130
  Receipt Date: 20101003
  Transmission Date: 20110831
  Serious: Yes (Hospitalization, Other)
  Sender: FDA-Public Use
  Company Number: US-ABBOTT-10P-163-0675876-00

PATIENT
  Sex: Female
  Weight: 61.744 kg

DRUGS (2)
  1. HUMIRA [Suspect]
     Dates: start: 20100601
  2. HUMIRA [Suspect]
     Indication: RHEUMATOID ARTHRITIS
     Dates: start: 20090101, end: 20100201

REACTIONS (4)
  - GALLBLADDER PAIN [None]
  - DIVERTICULITIS [None]
  - PYREXIA [None]
  - ABDOMINAL PAIN UPPER [None]
